FAERS Safety Report 19283738 (Version 1)
Quarter: 2021Q2

REPORT INFORMATION
  Report Type: Other
  Country: CA (occurrence: CA)
  Receive Date: 20210521
  Receipt Date: 20210521
  Transmission Date: 20210717
  Serious: Yes (Other)
  Sender: FDA-Public Use
  Company Number: CA-APOTEX-2021AP012059

PATIENT
  Age: 34 Year
  Sex: Female

DRUGS (6)
  1. FLUTICASONE. [Suspect]
     Active Substance: FLUTICASONE
     Indication: PRODUCT USED FOR UNKNOWN INDICATION
     Dosage: UNK
     Route: 065
  2. ZENHALE [Suspect]
     Active Substance: FORMOTEROL FUMARATE\MOMETASONE FUROATE
     Indication: ASTHMA
     Dosage: 2 DOSAGE FORM, QD
     Route: 065
  3. SINGULAIR [Suspect]
     Active Substance: MONTELUKAST SODIUM
     Indication: PRODUCT USED FOR UNKNOWN INDICATION
     Dosage: UNK
     Route: 065
  4. SPIRIVA [Suspect]
     Active Substance: TIOTROPIUM BROMIDE MONOHYDRATE
     Indication: PRODUCT USED FOR UNKNOWN INDICATION
     Dosage: UNK
     Route: 065
  5. XOLAIR [Suspect]
     Active Substance: OMALIZUMAB
     Indication: ASTHMA
     Dosage: 300 MILLIGRAM, QD
     Route: 065
  6. RUPALL [Suspect]
     Active Substance: RUPATADINE FUMARATE
     Indication: PRODUCT USED FOR UNKNOWN INDICATION
     Dosage: 1 DOSAGE FORM, QD
     Route: 065

REACTIONS (18)
  - Upper respiratory tract infection [Unknown]
  - Obstructive airways disorder [Unknown]
  - Sleep apnoea syndrome [Unknown]
  - Weight increased [Unknown]
  - Dyspnoea [Unknown]
  - Sinusitis [Unknown]
  - Hypersensitivity [Unknown]
  - Condition aggravated [Unknown]
  - Overweight [Unknown]
  - Sinonasal obstruction [Unknown]
  - Therapeutic product effect incomplete [Unknown]
  - Aphonia [Unknown]
  - Pneumonia [Unknown]
  - Pharyngitis [Unknown]
  - Expiratory reserve volume decreased [Unknown]
  - Eye pruritus [Unknown]
  - Upper-airway cough syndrome [Unknown]
  - Asthma [Unknown]
